FAERS Safety Report 8524323 (Version 4)
Quarter: 2012Q4

REPORT INFORMATION
  Report Type: Report from Study
  Country: None (occurrence: None)
  Receive Date: 20120420
  Receipt Date: 20120828
  Transmission Date: 20130627
  Serious: Yes (Other)
  Sender: FDA-Public Use
  Company Number: RS-CELGENEUS-308-21880-12041102

PATIENT
  Age: 60 Year
  Sex: Male
  Weight: 71 kg

DRUGS (10)
  1. REVLIMID [Suspect]
     Indication: MULTIPLE MYELOMA
     Route: 048
     Dates: start: 20110711, end: 20111120
  2. REVLIMID [Suspect]
     Route: 048
     Dates: start: 20111226, end: 20120115
  3. REVLIMID [Suspect]
     Route: 048
     Dates: start: 20120220, end: 20120408
  4. DEXAMETHASONE [Suspect]
     Indication: MULTIPLE MYELOMA
     Route: 065
     Dates: start: 20110711, end: 20111121
  5. DEXAMETHASONE [Suspect]
     Route: 065
     Dates: start: 20111226, end: 20120409
  6. ASPIRINE [Concomitant]
     Indication: ANTICOAGULANT THERAPY
     Dosage: 100 Milligram
     Route: 048
     Dates: start: 20110709
  7. ASPIRINE [Concomitant]
     Indication: ANTIPLATELET THERAPY
  8. FARIN [Concomitant]
     Indication: THROMBOSIS PROPHYLAXIS
     Dosage: 5 Milligram
     Route: 048
     Dates: start: 20120131, end: 20120324
  9. FARIN [Concomitant]
     Dosage: 5 Milligram
     Route: 048
     Dates: start: 20120328
  10. LANZUL S [Concomitant]
     Indication: PROPHYLAXIS
     Dosage: 15 Milligram
     Route: 048
     Dates: start: 20110709

REACTIONS (1)
  - Malignant melanoma [Recovered/Resolved]
